FAERS Safety Report 9781068 (Version 1)
Quarter: 2013Q4

REPORT INFORMATION
  Report Type: Spontaneous
  Country: US (occurrence: None)
  Receive Date: 20131223
  Receipt Date: 20131223
  Transmission Date: 20140711
  Serious: Yes (Hospitalization, Disabling)
  Sender: FDA-Public Use
  Company Number: None

PATIENT
  Age: 35 Year
  Sex: Female
  Weight: 88.45 kg

DRUGS (1)
  1. BEYAZ [Suspect]
     Indication: CONTRACEPTION
     Dosage: ONCE DAILY TAKEN BY MOUTH
     Route: 048
     Dates: start: 20130401, end: 20131203

REACTIONS (2)
  - Cerebrovascular accident [None]
  - Cerebral thrombosis [None]
